FAERS Safety Report 7819612-8 (Version None)
Quarter: 2011Q4

REPORT INFORMATION
  Report Type: 
  Country: None (occurrence: None)
  Receive Date: 20111018
  Receipt Date: 20111018
  Transmission Date: 20120403
  Serious: Yes (Other)
  Sender: FDA-Public Use
  Company Number: None

PATIENT
  Age: 72 Year
  Sex: Female
  Weight: 90.718 kg

DRUGS (1)
  1. FENOFIBRATE [Suspect]
     Indication: BLOOD CHOLESTEROL
     Dosage: 145MG
     Route: 048
     Dates: start: 20110920, end: 20110929

REACTIONS (2)
  - URTICARIA [None]
  - ANGIOEDEMA [None]
